FAERS Safety Report 7009526-8 (Version None)
Quarter: 2010Q3

REPORT INFORMATION
  Report Type: 
  Country: None (occurrence: None)
  Receive Date: 20100923
  Receipt Date: 20100916
  Transmission Date: 20110219
  Serious: Yes (Other)
  Sender: FDA-Public Use
  Company Number: PHFR2010GB02600

PATIENT
  Sex: Male

DRUGS (7)
  1. CLOZARIL [Suspect]
     Indication: SCHIZOPHRENIA
     Dosage: UNK
     Route: 048
     Dates: start: 20100719, end: 20100818
  2. CLOZARIL [Suspect]
     Dosage: 300 MG, QD
     Route: 048
     Dates: start: 20100820, end: 20100821
  3. PREGABALIN [Concomitant]
     Dosage: 50 MG, UNK
     Dates: start: 20100701
  4. PROCYCLIDINE HYDROCHLORIDE 2MG TAB [Concomitant]
     Dosage: 5 MG, BID
     Route: 048
  5. ATORVASTATIN CALCIUM [Concomitant]
     Dosage: 20 MG, UNK
     Route: 048
     Dates: start: 20100701
  6. RANITIDINE [Concomitant]
     Dosage: 150 MG, UNK
     Route: 048
     Dates: start: 20100701
  7. METFORMIN [Concomitant]
     Dosage: 850 MG, UNK
     Route: 048
     Dates: start: 20100701

REACTIONS (4)
  - BLOOD PRESSURE ABNORMAL [None]
  - ELECTROCARDIOGRAM QT PROLONGED [None]
  - ORTHOSTATIC HYPOTENSION [None]
  - TACHYCARDIA [None]
